FAERS Safety Report 12186699 (Version 1)
Quarter: 2016Q1

REPORT INFORMATION
  Report Type: Spontaneous
  Country: US (occurrence: None)
  Receive Date: 20160316
  Receipt Date: 20160316
  Transmission Date: 20160526
  Serious: Yes (Hospitalization)
  Sender: FDA-Public Use
  Company Number: None

PATIENT
  Age: 84 Year
  Sex: Male
  Weight: 80.4 kg

DRUGS (1)
  1. APIXABAN [Suspect]
     Active Substance: APIXABAN
     Indication: ATRIAL FIBRILLATION
     Route: 048
     Dates: start: 20150409, end: 20151105

REACTIONS (6)
  - Thrombosis [None]
  - Treatment failure [None]
  - Embolic stroke [None]
  - Pancreatic carcinoma [None]
  - Metastases to liver [None]
  - Renal impairment [None]

NARRATIVE: CASE EVENT DATE: 20151104
